FAERS Safety Report 7319344-9 (Version None)
Quarter: 2011Q1

REPORT INFORMATION
  Report Type: 
  Country: None (occurrence: None)
  Receive Date: 20110228
  Receipt Date: 20100208
  Transmission Date: 20110831
  Serious: No
  Sender: FDA-Public Use
  Company Number: A0843499A

PATIENT
  Age: 17 Year
  Sex: Female

DRUGS (2)
  1. LAMICTAL [Suspect]
     Indication: BIPOLAR DISORDER
     Dosage: 200MG PER DAY
     Route: 048
     Dates: start: 20070101
  2. YAZ [Concomitant]

REACTIONS (5)
  - OROPHARYNGEAL PAIN [None]
  - RASH [None]
  - TREATMENT NONCOMPLIANCE [None]
  - PRURITUS [None]
  - ERYTHEMA [None]
